FAERS Safety Report 6544363-X (Version None)
Quarter: 2010Q1

REPORT INFORMATION
  Report Type: 
  Country: None (occurrence: None)
  Receive Date: 20100120
  Receipt Date: 20100120
  Transmission Date: 20100710
  Serious: Yes (Hospitalization)
  Sender: FDA-Public Use
  Company Number: None

PATIENT
  Sex: Female
  Weight: 60.2 kg

DRUGS (7)
  1. METHYLPREDNISOLONE [Suspect]
     Dosage: 2050 MG
  2. PEG-L-ASPARAGINASE (K-H) [Suspect]
     Dosage: 4250 MG
  3. VINCRISTINE SULFATE [Suspect]
     Dosage: 6 MG
  4. ALLOPURINOL [Suspect]
     Dosage: 2100 MG
  5. CYTARABINE [Suspect]
     Dosage: 70 MG
  6. DAUNORUBICIN HCL [Suspect]
     Dosage: 127.5 MG
  7. METHOTREXATE [Suspect]
     Dosage: 15 MG

REACTIONS (1)
  - POST LUMBAR PUNCTURE SYNDROME [None]
